FAERS Safety Report 13730476 (Version 1)
Quarter: 2017Q3

REPORT INFORMATION
  Report Type: Spontaneous
  Country: US (occurrence: US)
  Receive Date: 20170707
  Receipt Date: 20170707
  Transmission Date: 20171127
  Serious: No
  Sender: FDA-Public Use
  Company Number: US-BAYER-2017-127728

PATIENT
  Sex: Female

DRUGS (1)
  1. CLIMARA PRO [Suspect]
     Active Substance: ESTRADIOL\LEVONORGESTREL
     Indication: OESTROGEN REPLACEMENT THERAPY
     Dosage: UNK
     Route: 061

REACTIONS (3)
  - Product adhesion issue [None]
  - Application site rash [None]
  - Application site irritation [None]
